FAERS Safety Report 10074530 (Version 1)
Quarter: 2014Q2

REPORT INFORMATION
  Report Type: Spontaneous
  Country: US (occurrence: US)
  Receive Date: 20140411
  Receipt Date: 20140411
  Transmission Date: 20141212
  Serious: No
  Sender: FDA-Public Use
  Company Number: US-SA-2013SA127745

PATIENT
  Age: 71 Year
  Sex: Male
  Weight: 102.06 kg

DRUGS (2)
  1. ALLEGRA D [Suspect]
     Indication: RHINORRHOEA
     Dosage: TAKEN FROM: 3 DAYS AGO?FIRST DAY HE TOOK ALLEGRA BID, BUT THEN CUT BACK TO TAKING IT QD
     Route: 048
     Dates: start: 20131202, end: 20131205
  2. NO MENTION OF CONCOMITANT MEDICATIONS [Concomitant]

REACTIONS (3)
  - Hordeolum [Recovered/Resolved]
  - Dry eye [Recovered/Resolved]
  - Drug ineffective [Unknown]
